FAERS Safety Report 17067887 (Version 1)
Quarter: 2019Q4

REPORT INFORMATION
  Report Type: Spontaneous
  Country: IT (occurrence: IT)
  Receive Date: 20191122
  Receipt Date: 20191122
  Transmission Date: 20200122
  Serious: Yes (Hospitalization)
  Sender: FDA-Public Use
  Company Number: NVSC2019IT043503

PATIENT
  Age: 63 Year
  Sex: Female

DRUGS (3)
  1. LANTUS [Concomitant]
     Active Substance: INSULIN GLARGINE
     Indication: PRODUCT USED FOR UNKNOWN INDICATION
     Dosage: UNK
     Route: 058
  2. OLANZAPINE. [Suspect]
     Active Substance: OLANZAPINE
     Indication: INTENTIONAL SELF-INJURY
     Dosage: UNK
     Route: 048
     Dates: start: 20190612, end: 20190612
  3. NOVORAPID [Concomitant]
     Active Substance: INSULIN ASPART
     Indication: PRODUCT USED FOR UNKNOWN INDICATION
     Dosage: UNK
     Route: 058

REACTIONS (3)
  - Tachycardia [Unknown]
  - Drug abuse [Unknown]
  - Sopor [Unknown]

NARRATIVE: CASE EVENT DATE: 20190612
